FAERS Safety Report 8172539-7 (Version None)
Quarter: 2012Q1

REPORT INFORMATION
  Report Type: 
  Country: None (occurrence: None)
  Receive Date: 20120223
  Receipt Date: 20120215
  Transmission Date: 20120608
  Serious: Yes (Other)
  Sender: FDA-Public Use
  Company Number: 2012-00062

PATIENT
  Age: 57 Year
  Sex: Female

DRUGS (2)
  1. LISINOPRIL [Concomitant]
  2. OXYMETAZOLINE HYDROCHLORIDE SPRAY [Suspect]
     Indication: NASAL CONGESTION
     Dosage: INSERTED NASALLY EVERY 12 HOURS
     Route: 045
     Dates: start: 20120125

REACTIONS (2)
  - DRUG DEPENDENCE [None]
  - NASAL CONGESTION [None]
